FAERS Safety Report 25647658 (Version 1)
Quarter: 2025Q3

REPORT INFORMATION
  Report Type: Spontaneous
  Country: EU (occurrence: EU)
  Receive Date: 20250806
  Receipt Date: 20250806
  Transmission Date: 20251020
  Serious: Yes (Other)
  Sender: AMGEN
  Company Number: EU-ABBVIE-6378621

PATIENT
  Age: 56 Year
  Sex: Female
  Weight: 93 kg

DRUGS (5)
  1. ADALIMUMAB [Suspect]
     Active Substance: ADALIMUMAB
     Indication: Product used for unknown indication
     Route: 058
  2. AZATHIOPRINE [Suspect]
     Active Substance: AZATHIOPRINE
     Indication: Product used for unknown indication
     Dosage: 50 MILLIGRAM, QD
     Route: 065
  3. AZATHIOPRINE [Suspect]
     Active Substance: AZATHIOPRINE
     Dosage: 200 MILLIGRAM, QD
     Route: 065
  4. AZATHIOPRINE [Suspect]
     Active Substance: AZATHIOPRINE
     Dosage: 100 MILLIGRAM, QD
     Route: 065
  5. UPADACITINIB [Suspect]
     Active Substance: UPADACITINIB
     Indication: Product used for unknown indication
     Route: 048

REACTIONS (11)
  - Inflammatory bowel disease [Unknown]
  - Frequent bowel movements [Unknown]
  - Tobacco user [Unknown]
  - Faecal occult blood positive [Unknown]
  - Transaminases increased [Recovered/Resolved]
  - Plasmacytosis [Unknown]
  - Proctoscopy abnormal [Unknown]
  - Granuloma [Unknown]
  - Faecal calprotectin increased [Recovering/Resolving]
  - Pseudopolyp [Unknown]
  - Abdominal pain [Unknown]

NARRATIVE: CASE EVENT DATE: 20190101
